FAERS Safety Report 8870619 (Version 1)
Quarter: 2012Q4

REPORT INFORMATION
  Report Type: 
  Country: US (occurrence: US)
  Receive Date: 20121026
  Receipt Date: 20121026
  Transmission Date: 20130627
  Serious: No
  Sender: FDA-Public Use
  Company Number: US-AMGEN-USASP2012046782

PATIENT
  Sex: Female
  Weight: 60.77 kg

DRUGS (7)
  1. ENBREL [Suspect]
     Indication: PRODUCT USED FOR UNKNOWN INDICATION
     Dosage: 50 mg, qwk
     Route: 058
  2. RESTASIS [Concomitant]
     Dosage: 0.05 %, UNK
  3. ASTELIN                            /00085801/ [Concomitant]
     Dosage: 137 UNK, UNK
  4. MELOXICAM [Concomitant]
     Dosage: 15 mg, UNK
  5. LORAZEPAM [Concomitant]
     Dosage: 1 mg, UNK
  6. GLUCOSAMIN CHONDROITIN             /01430901/ [Concomitant]
     Dosage: UNK
  7. MULTIVITAMINS WITH MINERALS        /02319901/ [Concomitant]
     Dosage: UNK

REACTIONS (2)
  - Injection site rash [Unknown]
  - Injection site pain [Unknown]
